FAERS Safety Report 25850236 (Version 1)
Quarter: 2025Q3

REPORT INFORMATION
  Report Type: Spontaneous
  Country: CA (occurrence: CA)
  Receive Date: 20250926
  Receipt Date: 20250926
  Transmission Date: 20251021
  Serious: Yes (Hospitalization, Disabling)
  Sender: ROCHE
  Company Number: CA-ROCHE-10000392737

PATIENT
  Age: 44 Year
  Sex: Female

DRUGS (1)
  1. RITUXIMAB [Suspect]
     Active Substance: RITUXIMAB
     Indication: Rheumatoid arthritis
     Route: 042

REACTIONS (9)
  - Contraindicated product administered [Unknown]
  - Condition aggravated [Not Recovered/Not Resolved]
  - Drug ineffective [Unknown]
  - Drug intolerance [Not Recovered/Not Resolved]
  - Injury [Not Recovered/Not Resolved]
  - Maternal exposure during pregnancy [Unknown]
  - Medication error [Unknown]
  - Product use issue [Unknown]
  - Therapeutic product effect decreased [Not Recovered/Not Resolved]
